FAERS Safety Report 5430699-2 (Version None)
Quarter: 2007Q3

REPORT INFORMATION
  Report Type: 
  Country: None (occurrence: None)
  Receive Date: 20070830
  Receipt Date: 20070823
  Transmission Date: 20080115
  Serious: Yes (Other)
  Sender: FDA-Public Use
  Company Number: BE-AVENTIS-200717778GDDC

PATIENT
  Age: 43 Year
  Sex: Male

DRUGS (1)
  1. KETEK [Suspect]
     Indication: PNEUMONIA
     Route: 048
     Dates: start: 20070312, end: 20070327

REACTIONS (3)
  - GAMMA-GLUTAMYLTRANSFERASE INCREASED [None]
  - MALAISE [None]
  - TRANSAMINASES INCREASED [None]
